FAERS Safety Report 6010779-3 (Version None)
Quarter: 2008Q4

REPORT INFORMATION
  Report Type: 
  Country: None (occurrence: None)
  Receive Date: 20081218
  Receipt Date: 20081209
  Transmission Date: 20090506
  Serious: Yes (Hospitalization)
  Sender: FDA-Public Use
  Company Number: PHHY2008BR31280

PATIENT
  Age: 83 Year
  Sex: Male
  Weight: 80 kg

DRUGS (5)
  1. TEGRETOL [Suspect]
     Indication: CEREBROVASCULAR ACCIDENT
     Dosage: 1 DF, QHS
     Route: 048
  2. ASPIRIN [Concomitant]
     Indication: CEREBROVASCULAR ACCIDENT
     Dosage: TWO TABLETS DAILY
     Route: 048
  3. ALDACTONE [Concomitant]
     Indication: SWELLING
     Dosage: 1 TABLET DAILY
     Route: 048
  4. LASIX [Concomitant]
     Dosage: 1 TABLET DAILY
  5. HYDROCHLOROTHIAZIDE [Concomitant]

REACTIONS (3)
  - PAIN [None]
  - SPINAL CORD COMPRESSION [None]
  - SWELLING [None]
